FAERS Safety Report 8984761 (Version 1)
Quarter: 2012Q4

REPORT INFORMATION
  Report Type: Spontaneous
  Country: US (occurrence: None)
  Receive Date: 20121214
  Receipt Date: 20121214
  Transmission Date: 20130627
  Serious: Yes (Hospitalization, Other)
  Sender: FDA-Public Use
  Company Number: 2012P1066610

PATIENT
  Age: 88 Year
  Sex: Male

DRUGS (4)
  1. INFUMORPH [Suspect]
     Indication: PAIN
  2. INFUMORPH [Suspect]
     Indication: LOW BACK PAIN
  3. CLONIDINE [Suspect]
     Indication: PAIN
  4. CLONIDINE [Suspect]
     Indication: LOW BACK PAIN

REACTIONS (6)
  - Feeling abnormal [None]
  - Unresponsive to stimuli [None]
  - Respiratory rate decreased [None]
  - Heart rate decreased [None]
  - Somnolence [None]
  - Overdose [None]
